FAERS Safety Report 17143760 (Version 2)
Quarter: 2019Q4

REPORT INFORMATION
  Report Type: Report from Study
  Country: US (occurrence: US)
  Receive Date: 20191212
  Receipt Date: 20191231
  Transmission Date: 20200122
  Serious: Yes (Hospitalization)
  Sender: FDA-Public Use
  Company Number: US-JNJFOC-20191211681

PATIENT
  Age: 22 Year
  Sex: Female
  Weight: 47 kg

DRUGS (6)
  1. TYLENOL [Concomitant]
     Active Substance: ACETAMINOPHEN
  2. LEVONORGESTREL. [Concomitant]
     Active Substance: LEVONORGESTREL
  3. NORETHINDRONE AND ETHINYL ESTRADIOL AND FERRO [Concomitant]
  4. INFLIXIMAB, RECOMBINANT [Suspect]
     Active Substance: INFLIXIMAB
     Route: 042
     Dates: start: 20180525
  5. INFLIXIMAB, RECOMBINANT [Suspect]
     Active Substance: INFLIXIMAB
     Indication: INFLAMMATORY BOWEL DISEASE
     Route: 042
     Dates: start: 20060822, end: 20140421
  6. INFLIXIMAB, RECOMBINANT [Suspect]
     Active Substance: INFLIXIMAB
     Route: 042
     Dates: start: 20190213

REACTIONS (1)
  - Pharyngeal abscess [Recovered/Resolved]

NARRATIVE: CASE EVENT DATE: 201911
